FAERS Safety Report 24853364 (Version 1)
Quarter: 2025Q1

REPORT INFORMATION
  Report Type: Spontaneous
  Country: GB (occurrence: GB)
  Receive Date: 20250117
  Receipt Date: 20250117
  Transmission Date: 20250408
  Serious: Yes (Other)
  Sender: AUROBINDO
  Company Number: GB-MHRA-MED-202501032251104880-DTLGJ

PATIENT
  Sex: Female

DRUGS (1)
  1. SERTRALINE [Suspect]
     Active Substance: SERTRALINE HYDROCHLORIDE
     Indication: Adverse drug reaction
     Dosage: 50 MILLIGRAM, ONCE A DAY
     Route: 065
     Dates: start: 20241230, end: 20250103

REACTIONS (5)
  - Serotonin syndrome [Not Recovered/Not Resolved]
  - Tic [Recovering/Resolving]
  - Echolalia [Recovering/Resolving]
  - Agitation [Recovering/Resolving]
  - Hypomania [Recovering/Resolving]

NARRATIVE: CASE EVENT DATE: 20250103
